FAERS Safety Report 8418274-9 (Version None)
Quarter: 2012Q2

REPORT INFORMATION
  Report Type: 
  Country: None (occurrence: None)
  Receive Date: 20120607
  Receipt Date: 20120530
  Transmission Date: 20120825
  Serious: No
  Sender: FDA-Public Use
  Company Number: US-B.I. PHARMACEUTICALS,INC./RIDGEFIELD-2012-BP-12707BP

PATIENT
  Sex: Female

DRUGS (5)
  1. FORTICAL [Concomitant]
     Indication: OSTEOPENIA
     Route: 045
  2. SPIRIVA [Suspect]
     Indication: CHRONIC OBSTRUCTIVE PULMONARY DISEASE
     Dosage: 18 MCG
     Route: 055
     Dates: start: 20120526
  3. CALCIUM SUPPLEMENT [Concomitant]
     Indication: PROPHYLAXIS
  4. XELODA [Concomitant]
     Indication: BREAST CANCER
     Dosage: 3600 MG
     Route: 048
  5. MULTI-VITAMIN [Concomitant]
     Indication: PROPHYLAXIS

REACTIONS (1)
  - DYSPNOEA [None]
